FAERS Safety Report 7727785-0 (Version None)
Quarter: 2011Q3

REPORT INFORMATION
  Report Type: 
  Country: None (occurrence: None)
  Receive Date: 20110905
  Receipt Date: 20110823
  Transmission Date: 20111222
  Serious: Yes (Hospitalization)
  Sender: FDA-Public Use
  Company Number: MY-BRISTOL-MYERS SQUIBB COMPANY-16017352

PATIENT
  Age: 36 Year
  Sex: Male

DRUGS (3)
  1. HALOPERIDOL [Concomitant]
  2. ABILIFY [Suspect]
     Indication: SCHIZOPHRENIA
     Route: 048
     Dates: start: 20110622, end: 20110818
  3. BENZHEXOL [Concomitant]

REACTIONS (2)
  - PSYCHIATRIC SYMPTOM [None]
  - PSYCHOTIC DISORDER [None]
